FAERS Safety Report 6905266-1 (Version None)
Quarter: 2010Q3

REPORT INFORMATION
  Report Type: 
  Country: None (occurrence: None)
  Receive Date: 20100804
  Receipt Date: 20100726
  Transmission Date: 20110219
  Serious: No
  Sender: FDA-Public Use
  Company Number: US-JNJFOC-20100708333

PATIENT
  Sex: Female
  Weight: 53.07 kg

DRUGS (14)
  1. FENTANYL CITRATE [Suspect]
     Indication: SCOLIOSIS
     Route: 062
  2. FENTANYL CITRATE [Suspect]
     Route: 062
  3. FENTANYL CITRATE [Suspect]
     Indication: SPINAL COLUMN STENOSIS
     Route: 062
  4. FENTANYL CITRATE [Suspect]
     Route: 062
  5. FENTANYL CITRATE [Suspect]
     Indication: OSTEITIS DEFORMANS
     Route: 062
  6. FENTANYL CITRATE [Suspect]
     Route: 062
  7. ESTRACE [Concomitant]
     Indication: VULVOVAGINAL DRYNESS
     Route: 067
  8. XANAX [Concomitant]
     Indication: SLEEP DISORDER
     Dosage: AT BED TIME
     Route: 048
  9. DIAZEPAM [Concomitant]
     Indication: MUSCLE SPASMS
     Route: 048
  10. NEXIUM [Concomitant]
     Indication: ULCER
     Route: 048
  11. PERCOCET [Concomitant]
     Indication: PAIN
     Dosage: 3-5 A DAY AS NEEDED
     Route: 048
  12. SALMON [Concomitant]
     Indication: OSTEITIS DEFORMANS
     Route: 058
  13. FORTICAL [Concomitant]
     Indication: OSTEITIS DEFORMANS
     Route: 045
  14. VITAMIN D [Concomitant]
     Indication: OSTEITIS DEFORMANS
     Route: 048

REACTIONS (3)
  - DRUG INEFFECTIVE [None]
  - HEADACHE [None]
  - WRONG TECHNIQUE IN DRUG USAGE PROCESS [None]
